FAERS Safety Report 7506193-1 (Version None)
Quarter: 2011Q2

REPORT INFORMATION
  Report Type: 
  Country: None (occurrence: None)
  Receive Date: 20110526
  Receipt Date: 20110512
  Transmission Date: 20111010
  Serious: Yes (Hospitalization)
  Sender: FDA-Public Use
  Company Number: CA-JNJFOC-20100900366

PATIENT
  Sex: Male
  Weight: 97.52 kg

DRUGS (2)
  1. REMICADE [Suspect]
     Route: 042
     Dates: start: 20080212
  2. REMICADE [Suspect]
     Indication: CROHN'S DISEASE
     Route: 042
     Dates: start: 20100730

REACTIONS (1)
  - SINUS OPERATION [None]
